FAERS Safety Report 4294484-X (Version None)
Quarter: 2004Q1

REPORT INFORMATION
  Report Type: 
  Country: None (occurrence: None)
  Receive Date: 20040211
  Receipt Date: 20040202
  Transmission Date: 20041129
  Serious: Yes (Hospitalization)
  Sender: FDA-Public Use
  Company Number: 2004007015

PATIENT
  Age: 72 Year
  Sex: Male

DRUGS (1)
  1. ATORVASTATIN CALCIUM [Suspect]
     Indication: DYSLIPIDAEMIA
     Dosage: 10 MG (DAILY), ORAL
     Route: 048
     Dates: start: 19990401, end: 20020701

REACTIONS (3)
  - BRAIN TUMOUR OPERATION [None]
  - LUNG NEOPLASM [None]
  - LUNG OPERATION [None]
